FAERS Safety Report 22045625 (Version 1)
Quarter: 2023Q1

REPORT INFORMATION
  Report Type: Spontaneous
  Country: CN (occurrence: CN)
  Receive Date: 20230228
  Receipt Date: 20230228
  Transmission Date: 20230417
  Serious: Yes (Other)
  Sender: FDA-Public Use
  Company Number: CN-PFIZER INC-PV202300036282

PATIENT
  Age: 79 Year
  Sex: Male
  Weight: 60 kg

DRUGS (4)
  1. NIRMATRELVIR\RITONAVIR [Suspect]
     Active Substance: NIRMATRELVIR\RITONAVIR
     Indication: COVID-19 treatment
     Dosage: 150MG OF NIRMATRELVIR TABLETS AND 100MG OF RITONAVIR TABLETS EACH TIME, EVERY 12 HOURS
     Route: 048
     Dates: start: 20230124, end: 20230129
  2. DEXAMETHASONE SODIUM PHOSPHATE [Concomitant]
     Active Substance: DEXAMETHASONE SODIUM PHOSPHATE
     Indication: COVID-19 treatment
     Dosage: 6 MG, 1X/DAY
     Route: 041
     Dates: start: 20230123, end: 20230203
  3. MEROPENEM [Concomitant]
     Active Substance: MEROPENEM
     Indication: Sepsis
     Dosage: 1 G, 3X/DAY, FOR 2 HOURS AT EACH TIME
     Route: 041
     Dates: start: 20230123, end: 20230203
  4. RANITIDINE HYDROCHLORIDE [Concomitant]
     Active Substance: RANITIDINE HYDROCHLORIDE
     Indication: Sepsis
     Dosage: 50 MG, 1X/DAY
     Route: 041
     Dates: start: 20230123, end: 20230203

REACTIONS (2)
  - Hepatic function abnormal [Recovering/Resolving]
  - Condition aggravated [Recovering/Resolving]

NARRATIVE: CASE EVENT DATE: 20230129
